FAERS Safety Report 10211724 (Version 1)
Quarter: 2014Q2

REPORT INFORMATION
  Report Type: Spontaneous
  Country: US (occurrence: US)
  Receive Date: 20140602
  Receipt Date: 20140602
  Transmission Date: 20141212
  Serious: No
  Sender: FDA-Public Use
  Company Number: US-GILEAD-2014-0103665

PATIENT
  Age: 16 Year
  Sex: Male

DRUGS (5)
  1. LETAIRIS [Suspect]
     Indication: PRODUCT USED FOR UNKNOWN INDICATION
     Dosage: 10 MG, UNK
     Route: 065
     Dates: start: 20081030
  2. REVATIO [Concomitant]
  3. COUMADIN                           /00014802/ [Concomitant]
  4. LASIX                              /00032601/ [Concomitant]
  5. ALDACTONE                          /00006201/ [Concomitant]

REACTIONS (1)
  - Asthma [Unknown]
